FAERS Safety Report 7420574-6 (Version None)
Quarter: 2011Q2

REPORT INFORMATION
  Report Type: 
  Country: None (occurrence: None)
  Receive Date: 20110418
  Receipt Date: 20110415
  Transmission Date: 20111010
  Serious: No
  Sender: FDA-Public Use
  Company Number: US-PFIZER INC-2011083693

PATIENT
  Age: 63 Year
  Sex: Male
  Weight: 71.2 kg

DRUGS (7)
  1. TRAZODONE [Concomitant]
     Indication: SLEEP DISORDER
  2. CHANTIX [Suspect]
     Indication: SMOKING CESSATION THERAPY
     Dosage: 1 MG, 2X/DAY
     Route: 048
     Dates: start: 20110404, end: 20110401
  3. LISINOPRIL AND HYDROCHLOROTHIAZIDE [Concomitant]
     Indication: DIURETIC THERAPY
     Dosage: 5/12.5 MG 2X/DAY
     Route: 048
  4. TRAZODONE [Concomitant]
     Indication: DEPRESSION
     Dosage: 400 MG, 1X/DAY
     Route: 048
  5. PRAZOSIN HCL [Concomitant]
     Indication: BLOOD PRESSURE ABNORMAL
     Dosage: 2 MG, 2X/DAY
     Route: 048
  6. METOPROLOL TARTRATE [Concomitant]
     Indication: BLOOD PRESSURE ABNORMAL
     Dosage: 25 MG, 2X/DAY
     Route: 048
  7. INSULIN [Concomitant]
     Indication: DIABETES MELLITUS
     Dosage: 25 UNITS IN THE MORNING AND 20 UNITS AT NIGHT

REACTIONS (10)
  - NAUSEA [None]
  - DEHYDRATION [None]
  - DIARRHOEA [None]
  - MALAISE [None]
  - RETCHING [None]
  - VOMITING [None]
  - PAIN [None]
  - ABDOMINAL DISTENSION [None]
  - FLATULENCE [None]
  - FATIGUE [None]
